FAERS Safety Report 20956227 (Version 1)
Quarter: 2022Q2

REPORT INFORMATION
  Report Type: Spontaneous
  Country: FR (occurrence: FR)
  Receive Date: 20220614
  Receipt Date: 20220614
  Transmission Date: 20220721
  Serious: Yes (Hospitalization)
  Sender: FDA-Public Use
  Company Number: None

PATIENT
  Age: 91 Year
  Sex: Male
  Weight: 71.8 kg

DRUGS (3)
  1. CEFEPIME [Suspect]
     Active Substance: CEFEPIME HYDROCHLORIDE
     Indication: Interstitial lung disease
     Dosage: UNK
     Dates: start: 20220514, end: 20220527
  2. CLINDAMYCIN [Suspect]
     Active Substance: CLINDAMYCIN
     Indication: Interstitial lung disease
     Dosage: UNK
     Dates: start: 20220514, end: 20220527
  3. FLAGYL [Suspect]
     Active Substance: METRONIDAZOLE\METRONIDAZOLE HYDROCHLORIDE
     Indication: Interstitial lung disease
     Dosage: UNK
     Dates: start: 20220514, end: 20220527

REACTIONS (1)
  - Nervous system disorder [Recovering/Resolving]

NARRATIVE: CASE EVENT DATE: 20220525
